FAERS Safety Report 23149153 (Version 1)
Quarter: 2023Q4

REPORT INFORMATION
  Report Type: Spontaneous
  Country: US (occurrence: US)
  Receive Date: 20231106
  Receipt Date: 20231106
  Transmission Date: 20240109
  Serious: No
  Sender: FDA-Public Use
  Company Number: US-PARATEK PHARMACEUTICALS, INC.-2023PTK00193

PATIENT
  Age: 67 Year
  Sex: Female
  Weight: 72.9 kg

DRUGS (11)
  1. NUZYRA [Suspect]
     Active Substance: OMADACYCLINE
     Indication: Mycobacterium abscessus infection
     Dosage: UNK
     Route: 048
     Dates: start: 20200408, end: 20200612
  2. NUZYRA [Suspect]
     Active Substance: OMADACYCLINE
     Indication: Postoperative wound infection
     Dosage: UNK
     Route: 048
     Dates: start: 20210204, end: 20210213
  3. IMIPENEM [Concomitant]
     Active Substance: IMIPENEM
     Dosage: UNK, EVERY 12 HOURS
     Route: 042
  4. AMIKACIN [Concomitant]
     Active Substance: AMIKACIN
     Dosage: 700 MG, 3X/WEEK
  5. ACETYLCYSTEINE [Concomitant]
     Active Substance: ACETYLCYSTEINE
     Dosage: 600 MG, EVERY 12 HOURS
     Route: 048
  6. CALCIUM CARBONATE [Concomitant]
     Active Substance: CALCIUM CARBONATE
     Dosage: 1500 MG, 3X/DAY
     Route: 048
  7. CHOLECALCIFEROL [Concomitant]
     Active Substance: CHOLECALCIFEROL
     Dosage: 2000 UNITS, 1X/DAY
  8. ESCITALOPRAM [Concomitant]
     Active Substance: ESCITALOPRAM OXALATE
     Dosage: 10 MG, 1X/DAY
     Route: 048
  9. FLUTICASONE [Concomitant]
     Active Substance: FLUTICASONE
     Dosage: UNK, 2X/DAY AS NEEDED
     Route: 045
  10. ONDANSETRON [Concomitant]
     Active Substance: ONDANSETRON
     Dosage: 8 MG, 3X/DAY AS NEEDED
     Route: 048
  11. SCOPOLAMINE HYDROBROMIDE [Concomitant]
     Active Substance: SCOPOLAMINE HYDROBROMIDE
     Dosage: 1 MG PER 3 DAYS
     Route: 062

REACTIONS (3)
  - Pain in jaw [Recovered/Resolved]
  - Nausea [Recovered/Resolved]
  - Off label use [Recovered/Resolved]

NARRATIVE: CASE EVENT DATE: 20200101
